FAERS Safety Report 7603720-0 (Version None)
Quarter: 2011Q3

REPORT INFORMATION
  Report Type: 
  Country: None (occurrence: None)
  Receive Date: 20110701
  Receipt Date: 20110621
  Transmission Date: 20111222
  Serious: Yes (Hospitalization)
  Sender: FDA-Public Use
  Company Number: IT-DEXPHARM-20110815

PATIENT

DRUGS (7)
  1. NEBIVOLOL [Concomitant]
  2. METFORMIN HCL [Concomitant]
  3. VALSARTAN [Concomitant]
  4. OMEPRAZOLE [Suspect]
  5. RISEDRONIC ACID [Concomitant]
  6. DOXAZOSIN MESYLATE [Concomitant]
  7. DULOXETIME HYDROCHLORIDE [Suspect]
     Indication: STRESS URINARY INCONTINENCE
     Dosage: 40 MG MILLIGRAM(S) 2 IN 1 DAY

REACTIONS (3)
  - STRESS CARDIOMYOPATHY [None]
  - STRESS URINARY INCONTINENCE [None]
  - DRUG INTERACTION [None]
